FAERS Safety Report 10090268 (Version 1)
Quarter: 2014Q2

REPORT INFORMATION
  Report Type: Spontaneous
  Country: FR (occurrence: FR)
  Receive Date: 20140421
  Receipt Date: 20140421
  Transmission Date: 20141212
  Serious: Yes (Other)
  Sender: FDA-Public Use
  Company Number: FR-BRISTOL-MYERS SQUIBB COMPANY-20627659

PATIENT
  Age: 63 Year
  Sex: Female

DRUGS (1)
  1. YERVOY [Suspect]
     Indication: MALIGNANT MELANOMA
     Dosage: 2ND INFUSION OF YERVOY 3 MG/KG ON 03 APRIL 2014
     Dates: start: 20140313

REACTIONS (3)
  - Headache [Unknown]
  - Pyrexia [Unknown]
  - Hepatocellular injury [Unknown]
